FAERS Safety Report 7326749-9 (Version None)
Quarter: 2011Q1

REPORT INFORMATION
  Report Type: 
  Country: None (occurrence: None)
  Receive Date: 20110302
  Receipt Date: 20090914
  Transmission Date: 20110831
  Serious: No
  Sender: FDA-Public Use
  Company Number: US-PFIZER INC-2009244116

PATIENT

DRUGS (1)
  1. VFEND [Suspect]
     Indication: FUNGAL INFECTION

REACTIONS (3)
  - COLOUR BLINDNESS ACQUIRED [None]
  - VISION BLURRED [None]
  - VISUAL ACUITY TESTS ABNORMAL [None]
